FAERS Safety Report 4988521-4 (Version None)
Quarter: 2006Q2

REPORT INFORMATION
  Report Type: 
  Country: None (occurrence: None)
  Receive Date: 20060502
  Receipt Date: 20060215
  Transmission Date: 20061013
  Serious: Yes (Hospitalization, Other)
  Sender: FDA-Public Use
  Company Number: US-AMGEN-US169042

PATIENT
  Sex: Female
  Weight: 46.3 kg

DRUGS (11)
  1. EPOGEN [Suspect]
     Indication: DIALYSIS
     Route: 042
     Dates: start: 20051128
  2. ARANESP [Suspect]
     Indication: RENAL FAILURE CHRONIC
     Route: 058
     Dates: end: 20051101
  3. NEPHRO-CAPS [Concomitant]
  4. TUMS [Concomitant]
  5. MEGACE [Concomitant]
  6. HYDRALAZINE HYDROCHLORIDE [Concomitant]
  7. SODIUM BICARBONATE [Concomitant]
  8. CLONIDINE [Concomitant]
  9. ATENOLOL [Concomitant]
  10. HECTORAL [Concomitant]
  11. IRON [Concomitant]
     Dates: end: 20060121

REACTIONS (4)
  - ANAEMIA [None]
  - HAEMODIALYSIS [None]
  - MYELODYSPLASTIC SYNDROME [None]
  - THERAPEUTIC RESPONSE DECREASED [None]
